FAERS Safety Report 10844788 (Version 2)
Quarter: 2016Q2

REPORT INFORMATION
  Report Type: Spontaneous
  Country: JP (occurrence: JP)
  Receive Date: 20150220
  Receipt Date: 20160401
  Transmission Date: 20160815
  Serious: Yes (Hospitalization, Other)
  Sender: FDA-Public Use
  Company Number: JP-SA-2015SA016931

PATIENT
  Age: 41 Year
  Sex: Female
  Weight: 70 kg

DRUGS (12)
  1. ELPLAT [Suspect]
     Active Substance: OXALIPLATIN
     Indication: COLON CANCER
     Route: 041
     Dates: start: 20121127, end: 20121127
  2. ELPLAT [Suspect]
     Active Substance: OXALIPLATIN
     Indication: COLON CANCER
     Route: 041
     Dates: start: 20130125, end: 20130125
  3. TAKEPRON [Concomitant]
     Active Substance: LANSOPRAZOLE
     Dates: start: 20121002, end: 20130711
  4. ELPLAT [Suspect]
     Active Substance: OXALIPLATIN
     Indication: COLON CANCER
     Route: 041
     Dates: start: 20130104, end: 20130104
  5. ELPLAT [Suspect]
     Active Substance: OXALIPLATIN
     Indication: COLON CANCER
     Route: 041
     Dates: start: 20130328, end: 20130328
  6. ELPLAT [Suspect]
     Active Substance: OXALIPLATIN
     Indication: COLON CANCER
     Route: 041
     Dates: start: 20130215, end: 20130215
  7. MAGLAX [Concomitant]
     Active Substance: MAGNESIUM OXIDE
     Dates: start: 20121002, end: 20131101
  8. LOXONIN [Concomitant]
     Active Substance: LOXOPROFEN SODIUM
     Dates: start: 20121002, end: 20131101
  9. ELPLAT [Suspect]
     Active Substance: OXALIPLATIN
     Indication: COLON CANCER
     Route: 041
     Dates: start: 20121106, end: 20121106
  10. XELODA [Concomitant]
     Active Substance: CAPECITABINE
     Dates: start: 20121106, end: 20130428
  11. ELPLAT [Suspect]
     Active Substance: OXALIPLATIN
     Indication: COLON CANCER
     Route: 041
     Dates: start: 20130307, end: 20130307
  12. ELPLAT [Suspect]
     Active Substance: OXALIPLATIN
     Indication: COLON CANCER
     Route: 041
     Dates: start: 20130418, end: 20130418

REACTIONS (4)
  - Varices oesophageal [Recovering/Resolving]
  - Portal hypertension [Recovering/Resolving]
  - Gastrointestinal oedema [Recovering/Resolving]
  - Ascites [Recovering/Resolving]

NARRATIVE: CASE EVENT DATE: 20130510
